FAERS Safety Report 4956282-0 (Version None)
Quarter: 2006Q1

REPORT INFORMATION
  Report Type: 
  Country: None (occurrence: None)
  Receive Date: 20060323
  Receipt Date: 20060313
  Transmission Date: 20060701
  Serious: Yes (Hospitalization)
  Sender: FDA-Public Use
  Company Number: 2006021456

PATIENT
  Sex: Female

DRUGS (9)
  1. LONITEN [Suspect]
     Indication: ESSENTIAL HYPERTENSION
     Dosage: ORAL
     Route: 048
     Dates: start: 20050601, end: 20051201
  2. RIFAMPIN AND ISONIAZID [Suspect]
     Indication: ILL-DEFINED DISORDER
     Dosage: 4 DOSAGE FORMS (QUID INTERVAL: EVERY DAY); ORAL
     Route: 048
     Dates: end: 20051230
  3. TOREM (TORASEMIDE) [Concomitant]
  4. MYFORTIC (MYCOPHENOLIC ACID SODIUM SALT) [Concomitant]
  5. COSAAR (LOSARTAN POTASSIUM) [Concomitant]
  6. SANDIMMUNE [Concomitant]
  7. METOPROLOL TARTRATE [Concomitant]
  8. NORVASC [Concomitant]
  9. RECORMON (ERYTHROPOIETIN HUMAN) [Concomitant]

REACTIONS (13)
  - DISEASE RECURRENCE [None]
  - DRUG INTERACTION [None]
  - FLUID RETENTION [None]
  - OEDEMA PERIPHERAL [None]
  - PERICARDIAL EFFUSION [None]
  - PLEURAL EFFUSION [None]
  - PULMONARY EMBOLISM [None]
  - RENAL IMPAIRMENT [None]
  - RIGHT VENTRICULAR FAILURE [None]
  - TUBERCULOUS PLEURISY [None]
  - VENTRICULAR HYPERTROPHY [None]
  - WEIGHT DECREASED [None]
  - WEIGHT INCREASED [None]
